FAERS Safety Report 5780542-7 (Version None)
Quarter: 2008Q2

REPORT INFORMATION
  Report Type: 
  Country: None (occurrence: None)
  Receive Date: 20080620
  Receipt Date: 20080611
  Transmission Date: 20081010
  Serious: Yes (Other)
  Sender: FDA-Public Use
  Company Number: AU-SANOFI-SYNTHELABO-A01200806635

PATIENT
  Sex: Male

DRUGS (4)
  1. SERETIDE [Concomitant]
     Indication: ASTHMA
     Dosage: UNK
     Route: 065
  2. PREDNISONE TAB [Concomitant]
     Indication: RHEUMATOID ARTHRITIS
     Dosage: UNK
     Route: 065
  3. ALBUTEROL [Concomitant]
     Indication: ASTHMA
     Dosage: UNK
     Route: 065
  4. PLAQUENIL [Suspect]
     Indication: RHEUMATOID ARTHRITIS
     Route: 065
     Dates: start: 20080101

REACTIONS (1)
  - ASTHMA [None]
